FAERS Safety Report 18243330 (Version 2)
Quarter: 2020Q3

REPORT INFORMATION
  Report Type: Spontaneous
  Country: US (occurrence: US)
  Receive Date: 20200908
  Receipt Date: 20200929
  Transmission Date: 20201103
  Serious: Yes (Life-Threatening, Hospitalization)
  Sender: FDA-Public Use
  Company Number: US-TEVA-2020-US-1824695

PATIENT
  Age: 74 Year
  Sex: Female

DRUGS (7)
  1. MORPHINE [Suspect]
     Active Substance: MORPHINE
     Indication: PAIN
     Dosage: 10 MG/ML VIA PUMP; INJECTION
     Route: 037
  2. SODIUM CHLORIDE. [Concomitant]
     Active Substance: SODIUM CHLORIDE
     Indication: PRODUCT USED FOR UNKNOWN INDICATION
     Route: 065
  3. LORAZEPAM. [Suspect]
     Active Substance: LORAZEPAM
     Indication: STATUS EPILEPTICUS
     Route: 065
  4. BUPIVACAINE. [Suspect]
     Active Substance: BUPIVACAINE
     Indication: PAIN
     Dosage: 35 MG/ML VIA PUMP; INJECTION
     Route: 037
  5. FAT EMULSION NOS [Suspect]
     Active Substance: EGG PHOSPHOLIPIDS\SAFFLOWER OIL\SOYBEAN OIL
     Indication: STATUS EPILEPTICUS
     Dosage: 1.5 CC/KG
     Route: 040
  6. FAT EMULSION NOS [Suspect]
     Active Substance: EGG PHOSPHOLIPIDS\SAFFLOWER OIL\SOYBEAN OIL
     Indication: STATUS EPILEPTICUS
     Dosage: 0.25 CC/KG/MIN
     Route: 041
  7. MIDAZOLAM. [Suspect]
     Active Substance: MIDAZOLAM
     Indication: STATUS EPILEPTICUS
     Route: 065

REACTIONS (16)
  - Respiratory depression [Recovered/Resolved]
  - Hypotension [Recovered/Resolved]
  - Tachycardia [Recovering/Resolving]
  - Psychiatric symptom [Recovering/Resolving]
  - Peripheral sensorimotor neuropathy [Recovering/Resolving]
  - Extra dose administered [Unknown]
  - Overdose [Unknown]
  - Drug ineffective [Unknown]
  - Encephalopathy [Recovering/Resolving]
  - Toxicity to various agents [Recovering/Resolving]
  - Hypertension [Recovering/Resolving]
  - Status epilepticus [Recovered/Resolved]
  - Somnolence [Recovering/Resolving]
  - Depressed level of consciousness [Recovering/Resolving]
  - Hypotonia [Recovering/Resolving]
  - Sensory loss [Recovering/Resolving]
